FAERS Safety Report 22337448 (Version 2)
Quarter: 2023Q2

REPORT INFORMATION
  Report Type: Spontaneous
  Country: CA (occurrence: None)
  Receive Date: 20230518
  Receipt Date: 20230630
  Transmission Date: 20230722
  Serious: Yes (Other)
  Sender: FDA-Public Use
  Company Number: 2023A113874

PATIENT
  Sex: Male

DRUGS (1)
  1. SYMBICORT [Suspect]
     Active Substance: BUDESONIDE\FORMOTEROL FUMARATE DIHYDRATE
     Dosage: 200 UG/ML
     Route: 055

REACTIONS (5)
  - Foreign body aspiration [Unknown]
  - Sputum discoloured [Unknown]
  - Device defective [Unknown]
  - Device malfunction [Unknown]
  - Product contamination physical [Unknown]
